FAERS Safety Report 5486832-X (Version None)
Quarter: 2007Q3

REPORT INFORMATION
  Report Type: 
  Country: None (occurrence: None)
  Receive Date: 20070925
  Receipt Date: 20070701
  Transmission Date: 20080115
  Serious: No
  Sender: FDA-Public Use
  Company Number: 2007US001532

PATIENT
  Age: 77 Year
  Sex: Female
  Weight: 56.7 kg

DRUGS (1)
  1. VESICARE(SOLIFENACIN) 5 MG [Suspect]
     Indication: POLLAKIURIA
     Dosage: 5 MG, UID/QD

REACTIONS (1)
  - POLLAKIURIA [None]
